FAERS Safety Report 8697550 (Version 2)
Quarter: 2012Q4

REPORT INFORMATION
  Report Type: 
  Country: US (occurrence: US)
  Receive Date: 20120801
  Receipt Date: 20121221
  Transmission Date: 20130627
  Serious: No
  Sender: FDA-Public Use
  Company Number: US-ASTRAZENECA-2012SE51323

PATIENT
  Age: 54 Year
  Sex: Female

DRUGS (1)
  1. CRESTOR [Suspect]
     Dosage: CUTTING PILLS IN HALF, EVERY OTHER MONTH
     Route: 048

REACTIONS (5)
  - Malaise [Unknown]
  - Laboratory test abnormal [Unknown]
  - Blood cholesterol increased [Unknown]
  - Off label use [Unknown]
  - Drug dose omission [Unknown]
